FAERS Safety Report 4402691-8 (Version None)
Quarter: 2004Q3

REPORT INFORMATION
  Report Type: 
  Country: None (occurrence: None)
  Receive Date: 20040719
  Receipt Date: 20040709
  Transmission Date: 20050211
  Serious: Yes (Hospitalization)
  Sender: FDA-Public Use
  Company Number: KII-2004-0012102

PATIENT
  Age: 42 Year
  Sex: Female

DRUGS (1)
  1. MORPHINE SULFATE [Suspect]
     Indication: DRUG USE FOR UNKNOWN INDICATION
     Dosage: UNK, UNK; ORAL
     Route: 048

REACTIONS (3)
  - FEELING ABNORMAL [None]
  - MEDICATION ERROR [None]
  - SOMNOLENCE [None]
